FAERS Safety Report 11137881 (Version 1)
Quarter: 2015Q2

REPORT INFORMATION
  Report Type: Spontaneous
  Country: US (occurrence: US)
  Receive Date: 20150526
  Receipt Date: 20150526
  Transmission Date: 20150821
  Serious: No
  Sender: FDA-Public Use
  Company Number: US-MALLINCKRODT-T201404573

PATIENT
  Age: 61 Year
  Sex: Female

DRUGS (2)
  1. H.P. ACTHAR [Suspect]
     Active Substance: CORTICOTROPIN
     Indication: DERMATOMYOSITIS
     Dosage: 80 UNITS 3XWKLY, 0.05 EACH INJECTION
     Route: 058
     Dates: start: 20130901
  2. H.P. ACTHAR [Suspect]
     Active Substance: CORTICOTROPIN
     Dosage: 80 UNITS, 2 X A WEEK
     Route: 058

REACTIONS (4)
  - Facial pain [Recovering/Resolving]
  - Inflammation [Recovering/Resolving]
  - Nasopharyngitis [Unknown]
  - Anxiety [Recovering/Resolving]

NARRATIVE: CASE EVENT DATE: 20141213
